FAERS Safety Report 9775115 (Version 1)
Quarter: 2013Q4

REPORT INFORMATION
  Report Type: Spontaneous
  Country: FR (occurrence: FR)
  Receive Date: 20131220
  Receipt Date: 20131220
  Transmission Date: 20140711
  Serious: Yes (Hospitalization)
  Sender: FDA-Public Use
  Company Number: FR-009507513-1312FRA008641

PATIENT
  Age: 65 Year
  Sex: Male
  Weight: 57 kg

DRUGS (18)
  1. REBETOL [Suspect]
     Indication: HEPATITIS C
     Dosage: 200 MG, QD
     Route: 048
     Dates: start: 20130510, end: 20130814
  2. PEGASYS [Suspect]
     Indication: HEPATITIS C
     Dosage: 180 MICROGRAM, QW
     Dates: start: 20130510, end: 20130814
  3. KARDEGIC [Concomitant]
     Indication: LIVER TRANSPLANT
     Dosage: 75 MG, QD
     Dates: start: 20050504
  4. LANTUS [Concomitant]
     Dosage: 18 IU, QD
     Route: 048
     Dates: start: 2009
  5. NOVORAPID [Concomitant]
     Indication: DIABETES MELLITUS
     Dosage: 8 IU, TID
     Dates: start: 2009
  6. INEXIUM [Concomitant]
     Indication: GASTRITIS
     Dosage: 200 MG, QD
     Dates: start: 20011015
  7. DELURSAN [Concomitant]
     Indication: FIBROSIS
     Dosage: 250 MG, BID
     Dates: start: 20101104
  8. AMLOR [Concomitant]
     Indication: HYPERTENSION
     Dosage: UNK
     Dates: start: 20130822
  9. TRIATEC (RAMIPRIL) [Concomitant]
     Indication: HYPERTENSION
     Dosage: UNK
     Dates: start: 20061129, end: 20130824
  10. ADVAGRAF [Concomitant]
     Indication: LIVER TRANSPLANT
     Dosage: 1 MG, UNK
     Dates: start: 20130822
  11. ADVAGRAF [Concomitant]
     Dosage: 1.5 MG, QD
  12. STILNOX [Concomitant]
     Indication: INSOMNIA
     Dosage: 10 MG, QD
     Dates: start: 20050808, end: 20131007
  13. CELLCEPT [Concomitant]
     Indication: LIVER TRANSPLANT
     Dosage: 500 MG, BID
     Dates: start: 20130822, end: 20130914
  14. PROGRAF [Concomitant]
     Indication: LIVER TRANSPLANT
     Dosage: 0.5 MG, BID
     Dates: start: 19970117, end: 20130502
  15. NEORAL [Concomitant]
     Indication: LIVER TRANSPLANT
     Dosage: 125 MG, BID
     Dates: start: 20130502, end: 20130822
  16. REVOLADE [Concomitant]
     Indication: THROMBOCYTOPENIA
     Dosage: 25 MG, QD
     Dates: start: 20130708, end: 20130822
  17. GRANOCYTE [Concomitant]
     Dosage: 105 IU, QD
  18. NEORECORMON [Concomitant]
     Indication: ANAEMIA
     Dosage: 30000 IU, UNK
     Dates: start: 20130711, end: 201309

REACTIONS (1)
  - Infection [Recovered/Resolved]
